FAERS Safety Report 5148330-2 (Version None)
Quarter: 2006Q4

REPORT INFORMATION
  Report Type: 
  Country: None (occurrence: None)
  Receive Date: 20061106
  Receipt Date: 20061023
  Transmission Date: 20070319
  Serious: Yes (Other)
  Sender: FDA-Public Use
  Company Number: 2006131884

PATIENT
  Age: 28 Year
  Sex: Male

DRUGS (3)
  1. CAVERJECT [Suspect]
     Indication: ERECTILE DYSFUNCTION
     Dosage: 10 MG
  2. COFFEE (COFFEE) [Suspect]
  3. GENERAL NUTRIENTS/MINERALS/VITAMINS (GENERAL NUTRIENTS, MINERALS NOS, [Suspect]

REACTIONS (7)
  - BUTTOCK PAIN [None]
  - ERECTILE DYSFUNCTION [None]
  - MUSCLE SPASMS [None]
  - PARALYSIS [None]
  - PENIS DISORDER [None]
  - PERIPHERAL COLDNESS [None]
  - URINARY RETENTION [None]
